APPROVED DRUG PRODUCT: CYKLX
Active Ingredient: ARTICAINE HYDROCHLORIDE
Strength: EQ 8% BASE
Dosage Form/Route: SOLUTION/DROPS;OPHTHALMIC
Application: N218643 | Product #001
Applicant: AMERICAN GENOMICS LLC
Approved: Aug 15, 2025 | RLD: Yes | RS: Yes | Type: RX

EXCLUSIVITY:
Code: NP | Date: Aug 15, 2028